FAERS Safety Report 10128627 (Version 1)
Quarter: 2014Q2

REPORT INFORMATION
  Report Type: Spontaneous
  Country: US (occurrence: US)
  Receive Date: 20140428
  Receipt Date: 20140428
  Transmission Date: 20141212
  Serious: Yes (Other)
  Sender: FDA-Public Use
  Company Number: US-SA-2014SA054016

PATIENT
  Sex: Female
  Weight: 52.16 kg

DRUGS (7)
  1. CEREZYME [Suspect]
     Indication: GAUCHER^S DISEASE
     Dosage: DOSE:2400 UNIT(S)
     Route: 042
     Dates: start: 20100108
  2. HEPARIN [Concomitant]
  3. NORMAL SALINE [Concomitant]
  4. EPINEPHRINE [Concomitant]
  5. ALBUTEROL [Concomitant]
  6. ALL OTHER THERAPEUTIC PRODUCTS [Concomitant]
  7. CLARITIN [Concomitant]

REACTIONS (2)
  - Urinary tract infection [Unknown]
  - Blood urine present [Unknown]
